FAERS Safety Report 12618490 (Version 1)
Quarter: 2016Q3

REPORT INFORMATION
  Report Type: Report from Study
  Country: NL (occurrence: NL)
  Receive Date: 20160803
  Receipt Date: 20160803
  Transmission Date: 20161109
  Serious: Yes (Hospitalization)
  Sender: FDA-Public Use
  Company Number: NL-ABBVIE-16K-114-1690937-00

PATIENT
  Sex: Male

DRUGS (1)
  1. DUODOPA [Suspect]
     Active Substance: CARBIDOPA\LEVODOPA
     Indication: PARKINSON^S DISEASE
     Dosage: MORNING DOSE: 12 CONTINUOUS DOSE: 2.8, EXTRA DOSE: 2
     Route: 050
     Dates: start: 20150928

REACTIONS (2)
  - Inflammation [Not Recovered/Not Resolved]
  - Bacterial infection [Not Recovered/Not Resolved]
